FAERS Safety Report 22277213 (Version 2)
Quarter: 2023Q2

REPORT INFORMATION
  Report Type: Spontaneous
  Country: US (occurrence: None)
  Receive Date: 20230503
  Receipt Date: 20230609
  Transmission Date: 20230722
  Serious: No
  Sender: FDA-Public Use
  Company Number: 2023A094329

PATIENT
  Age: 24789 Day
  Sex: Male

DRUGS (1)
  1. BYDUREON BCISE [Suspect]
     Active Substance: EXENATIDE
     Dosage: 2MG/ML ONCE A WEEK
     Route: 058

REACTIONS (7)
  - Hypoaesthesia [Unknown]
  - Laboratory test abnormal [Unknown]
  - Nausea [Unknown]
  - Vomiting [Unknown]
  - Drug dose omission by device [Unknown]
  - Wrong technique in device usage process [Unknown]
  - Device leakage [Unknown]

NARRATIVE: CASE EVENT DATE: 20230414
